FAERS Safety Report 9148987 (Version 1)
Quarter: 2013Q1

REPORT INFORMATION
  Report Type: Spontaneous
  Country: US (occurrence: US)
  Receive Date: 20130308
  Receipt Date: 20130308
  Transmission Date: 20140127
  Serious: No
  Sender: FDA-Public Use
  Company Number: US-ENDO PHARMACEUTICALS INC.-OPCR20121647

PATIENT
  Sex: Female

DRUGS (2)
  1. OPANA ER [Suspect]
     Indication: BACK PAIN
     Route: 048
     Dates: start: 201204, end: 201207
  2. OPANA ER [Suspect]
     Route: 048
     Dates: start: 2012, end: 201207

REACTIONS (4)
  - Medication residue present [Recovered/Resolved]
  - Abdominal pain [Unknown]
  - Withdrawal syndrome [Not Recovered/Not Resolved]
  - Drug ineffective [Recovered/Resolved]
